FAERS Safety Report 22359791 (Version 1)
Quarter: 2023Q2

REPORT INFORMATION
  Report Type: Spontaneous
  Country: US (occurrence: None)
  Receive Date: 20230523
  Receipt Date: 20230523
  Transmission Date: 20230722
  Serious: Yes (unspecified)
  Sender: FDA-Public Use
  Company Number: None

PATIENT
  Age: 37 Year
  Sex: Female

DRUGS (1)
  1. VIVITROL [Suspect]
     Active Substance: NALTREXONE
     Dosage: OTHER FREQUENCY : MONTHLY;?
     Route: 030
     Dates: start: 20230214, end: 20230314

REACTIONS (2)
  - Therapy interrupted [None]
  - Nonspecific reaction [None]

NARRATIVE: CASE EVENT DATE: 20230519
